FAERS Safety Report 5320622-3 (Version None)
Quarter: 2007Q2

REPORT INFORMATION
  Report Type: 
  Country: None (occurrence: None)
  Receive Date: 20070509
  Receipt Date: 20070430
  Transmission Date: 20071010
  Serious: Yes (Other)
  Sender: FDA-Public Use
  Company Number: US-PFIZER INC-2006094729

PATIENT
  Sex: Male
  Weight: 128.8 kg

DRUGS (8)
  1. CHANTIX [Suspect]
     Indication: SMOKING CESSATION THERAPY
  2. VERAPAMIL HYDROCHLORIDE [Suspect]
     Indication: BLOOD PRESSURE
  3. ANTIPSYCHOTICS [Suspect]
     Indication: SCHIZOPHRENIA
  4. ALL OTHER THERAPEUTIC PRODUCTS [Concomitant]
  5. ABILIFY [Concomitant]
  6. DEPAKOTE [Concomitant]
  7. ZESTORETIC [Concomitant]
  8. ACETYLSALICYLIC ACID SRT [Concomitant]

REACTIONS (10)
  - BLOOD PRESSURE INCREASED [None]
  - CONSTIPATION [None]
  - DRUG INEFFECTIVE [None]
  - ERECTILE DYSFUNCTION [None]
  - FATIGUE [None]
  - FEELING HOT [None]
  - HALLUCINATION [None]
  - HOT FLUSH [None]
  - NAUSEA [None]
  - SEXUAL DYSFUNCTION [None]
